FAERS Safety Report 21294646 (Version 1)
Quarter: 2022Q3

REPORT INFORMATION
  Report Type: Spontaneous
  Country: AU (occurrence: AU)
  Receive Date: 20220905
  Receipt Date: 20220905
  Transmission Date: 20221026
  Serious: Yes (Other)
  Sender: FDA-Public Use
  Company Number: AU-OTSUKA-2022_041944

PATIENT
  Age: 20 Year
  Sex: Male
  Weight: 90 kg

DRUGS (4)
  1. ARIPIPRAZOLE [Suspect]
     Active Substance: ARIPIPRAZOLE
     Indication: Product used for unknown indication
     Dosage: 400 MG
     Route: 030
  2. CLOZAPINE [Suspect]
     Active Substance: CLOZAPINE
     Indication: Product used for unknown indication
     Dosage: 500 MG, QM
     Route: 065
     Dates: start: 20210316
  3. CLOZAPINE [Suspect]
     Active Substance: CLOZAPINE
     Dosage: 450 MG
     Route: 065
  4. VERSACLOZ [Concomitant]
     Active Substance: CLOZAPINE
     Indication: Product used for unknown indication
     Dosage: 500 MG
     Dates: start: 20220622

REACTIONS (10)
  - Mitral valve incompetence [Unknown]
  - Pulmonary valve incompetence [Unknown]
  - C-reactive protein increased [Unknown]
  - Antipsychotic drug level increased [Unknown]
  - Red blood cell count increased [Unknown]
  - Blood urea increased [Unknown]
  - Palpitations [Unknown]
  - Tachycardia [Unknown]
  - White blood cell count decreased [Recovered/Resolved]
  - Therapy interrupted [Unknown]

NARRATIVE: CASE EVENT DATE: 20220201
